FAERS Safety Report 7945652-4 (Version None)
Quarter: 2011Q4

REPORT INFORMATION
  Report Type: 
  Country: None (occurrence: None)
  Receive Date: 20111129
  Receipt Date: 20111122
  Transmission Date: 20120403
  Serious: Yes (Hospitalization)
  Sender: FDA-Public Use
  Company Number: GB-AMGEN-GBRSP2011061471

PATIENT
  Age: 67 Year
  Sex: Female
  Weight: 108 kg

DRUGS (11)
  1. DARBEPOETIN ALFA [Concomitant]
  2. PARICALCITOL [Concomitant]
  3. EZETIMIBE [Concomitant]
  4. BISOPROLOL FUMARATE [Concomitant]
  5. NOVORAPID [Concomitant]
  6. PREDNISOLONE [Concomitant]
  7. CHLORPHENIRAMINE MALEATE [Concomitant]
  8. PROLIA [Suspect]
     Indication: OSTEOPOROSIS
     Dosage: 60 MG, ONE TIME DOSE
     Route: 058
     Dates: start: 20111001, end: 20111001
  9. ALU-CAP                            /00057401/ [Concomitant]
  10. LANSOPRAZOLE [Concomitant]
  11. INSULIN GLARGINE [Concomitant]

REACTIONS (3)
  - PARAESTHESIA [None]
  - HYPOCALCAEMIA [None]
  - PALPITATIONS [None]
